FAERS Safety Report 25706219 (Version 1)
Quarter: 2025Q3

REPORT INFORMATION
  Report Type: Spontaneous
  Country: US (occurrence: US)
  Receive Date: 20250820
  Receipt Date: 20250820
  Transmission Date: 20251021
  Serious: No
  Sender: SPRINGWORKS THERAPEUTIC
  Company Number: US-SPRINGWORKS THERAPEUTICS-SW-003204

PATIENT
  Sex: Female

DRUGS (3)
  1. GOMEKLI [Suspect]
     Active Substance: MIRDAMETINIB
     Indication: Product used for unknown indication
  2. GOMEKLI [Suspect]
     Active Substance: MIRDAMETINIB
  3. GOMEKLI [Suspect]
     Active Substance: MIRDAMETINIB

REACTIONS (2)
  - Rash [Unknown]
  - Fatigue [Unknown]
